FAERS Safety Report 4554600-9 (Version None)
Quarter: 2005Q1

REPORT INFORMATION
  Report Type: 
  Country: None (occurrence: None)
  Receive Date: 20050114
  Receipt Date: 20031023
  Transmission Date: 20050727
  Serious: Yes (Other)
  Sender: FDA-Public Use
  Company Number: GXKR2003US00557

PATIENT
  Age: 14 Month
  Sex: Female

DRUGS (6)
  1. IBUPROFEN [Suspect]
     Indication: PYREXIA
  2. PARACETAMOL (NGX) (PARACETAMOL) [Suspect]
     Indication: PYREXIA
  3. LORAZEPAM [Concomitant]
  4. PHENYTOIN [Concomitant]
  5. PHENOBARBITAL TAB [Concomitant]
  6. CEFTRIAXONE [Concomitant]

REACTIONS (1)
  - RENAL FAILURE ACUTE [None]
